FAERS Safety Report 20645103 (Version 1)
Quarter: 2022Q1

REPORT INFORMATION
  Report Type: Spontaneous
  Country: US (occurrence: None)
  Receive Date: 20220328
  Receipt Date: 20220328
  Transmission Date: 20220424
  Serious: No
  Sender: FDA-Public Use
  Company Number: None

PATIENT
  Age: 68 Year
  Sex: Female
  Weight: 66.6 kg

DRUGS (8)
  1. DILTIAZEM HYDROCHLORIDE [Suspect]
     Active Substance: DILTIAZEM HYDROCHLORIDE
     Indication: Hypertension
     Route: 048
     Dates: start: 20220315, end: 20220325
  2. LISINOPRIL [Concomitant]
     Active Substance: LISINOPRIL
  3. HCTZ 12.5 mg [Concomitant]
  4. ASPIRIN [Concomitant]
     Active Substance: ASPIRIN
  5. Vitamin D3 2000 IU [Concomitant]
  6. Vitamin B12 1000 mcg [Concomitant]
  7. Sublingual Senior multi vitamin AREDS [Concomitant]
  8. vitamin Fish Oil 1200 mg [Concomitant]

REACTIONS (4)
  - Rash erythematous [None]
  - Rash pruritic [None]
  - Lip swelling [None]
  - Ear swelling [None]

NARRATIVE: CASE EVENT DATE: 20220324
